FAERS Safety Report 23614810 (Version 1)
Quarter: 2024Q1

REPORT INFORMATION
  Report Type: Spontaneous
  Country: FR (occurrence: FR)
  Receive Date: 20240311
  Receipt Date: 20240311
  Transmission Date: 20240410
  Serious: Yes (Life-Threatening, Other)
  Sender: FDA-Public Use
  Company Number: FR-ROCHE-2180778

PATIENT
  Age: 38 Year
  Sex: Male

DRUGS (32)
  1. BUSULFAN [Suspect]
     Active Substance: BUSULFAN
     Indication: Prophylaxis against transplant rejection
     Dosage: 0.8 MG/KG, QID (4/DAY) FROM DAY -6 TO -4 : 63 UG X10 DOSES IN TOTAL
     Route: 042
  2. BUSULFAN [Suspect]
     Active Substance: BUSULFAN
     Indication: Autologous haematopoietic stem cell transplant
  3. CYTARABINE [Suspect]
     Active Substance: CYTARABINE
     Indication: Central nervous system lymphoma
     Dosage: 100 MG/M2, CYCLIC (2 CYCLES OF CYM CONSOLIDATION)
     Route: 065
  4. CYTARABINE [Suspect]
     Active Substance: CYTARABINE
     Dosage: 1500 MG/M2 (4 COURSES OF R-DIAM (CYTARABIN 1500 MG/M2 X 2 /DAY ON D1-D2)
     Route: 065
  5. CYTARABINE [Suspect]
     Active Substance: CYTARABINE
     Dosage: 2000 MG/M2
     Route: 065
  6. CYTARABINE [Suspect]
     Active Substance: CYTARABINE
     Dosage: 3000 MG/M2, QD (3 CYCLES OF DIAM AT 1ST RELAPSE)
     Route: 065
  7. CYTARABINE [Suspect]
     Active Substance: CYTARABINE
     Dosage: 3000 MG/M2, QD (FROM 4 COURSES OF R-DIAM AT 2ND RELAPSE)
     Route: 065
  8. CYTARABINE [Suspect]
     Active Substance: CYTARABINE
     Indication: Prophylaxis against transplant rejection
     Dosage: UNK, CYCLIC (2 CYCLES OF COPADEM INDUCTION)
     Route: 037
  9. DEXAMETHASONE [Suspect]
     Active Substance: DEXAMETHASONE
     Dosage: FROM 4 COURSES OF R-DIAM AT 2ND RELAPSE (40 MG D1 TO D4)
     Route: 065
  10. DEXAMETHASONE [Suspect]
     Active Substance: DEXAMETHASONE
     Indication: Prophylaxis against transplant rejection
     Dosage: 40 MG, CYCLIC (3 CYCLES OF DIAM AT 1ST RELAPSE)
     Route: 065
  11. DEXAMETHASONE [Suspect]
     Active Substance: DEXAMETHASONE
     Indication: Central nervous system lymphoma
     Dosage: FROM 4 COURSES OF R-DIAM AT 2ND RELAPSE (40 MG D1 TO D4)
     Route: 065
  12. DEXAMETHASONE [Suspect]
     Active Substance: DEXAMETHASONE
     Dosage: UNK (CONDITIONED BY BEAM-ARAC HIGH DOSE BEFORE ASCT)
     Route: 065
  13. CYCLOPHOSPHAMIDE [Suspect]
     Active Substance: CYCLOPHOSPHAMIDE
     Indication: Prophylaxis against transplant rejection
     Dosage: 250 MG/M2, CYCLIC (2 CYCLES OF COPADEM INDUCTION (250 MG/M2 EVERY 12 HOURS)
     Route: 065
  14. CYCLOPHOSPHAMIDE [Suspect]
     Active Substance: CYCLOPHOSPHAMIDE
     Indication: Autologous haematopoietic stem cell transplant
     Dosage: 60 MG/KG (CONDITIONING THERAPY FOR SECOND ASCT)
     Route: 065
  15. CYCLOPHOSPHAMIDE [Suspect]
     Active Substance: CYCLOPHOSPHAMIDE
     Dosage: 60 MG/KG, ON DAY -3 AND -2 : 4737.50 UG X 2
     Route: 065
  16. CYCLOPHOSPHAMIDE [Suspect]
     Active Substance: CYCLOPHOSPHAMIDE
     Indication: Central nervous system lymphoma
     Dosage: UNK (DEBULKING CHEMOTHERAPY)
     Route: 065
  17. CEFTAZIDIME [Suspect]
     Active Substance: CEFTAZIDIME
     Indication: Product used for unknown indication
     Dosage: UNK, UNKNOWN
     Route: 065
  18. LENOGRASTIM [Suspect]
     Active Substance: LENOGRASTIM
     Indication: Autologous haematopoietic stem cell transplant
     Dosage: 34 MUI/D, STARTING AT D12 AFTER THE 2ND CYCLE OF R-DIAM
     Route: 065
  19. IFOSFAMIDE [Suspect]
     Active Substance: IFOSFAMIDE
     Dosage: 1500 MG/M2 (FROM 4 COURSES OF R-DIAM AT 2ND RELAPSE)
     Route: 065
  20. IFOSFAMIDE [Suspect]
     Active Substance: IFOSFAMIDE
     Indication: Central nervous system lymphoma
     Dosage: 1500 MG/M2, 4 COURSES OF R-DIAM (IFOSFAMIDE 1500 MG/M2  FROM  D1-D5) (21 DAY)
     Route: 065
  21. METHOTREXATE [Suspect]
     Active Substance: METHOTREXATE
     Dosage: 15 MG (FROM 4 COURSES OF R-DIAM AT 2ND RELAPSE)
     Route: 065
  22. METHOTREXATE [Suspect]
     Active Substance: METHOTREXATE
     Dosage: 15 MG, CYCLIC (3 CYCLES OF DIAM AT 1ST RELAPSE)
     Route: 037
  23. METHOTREXATE [Suspect]
     Active Substance: METHOTREXATE
     Dosage: FROM 4 COURSES OF R-DIAM AT 2ND RELAPSE (15 MG)
     Route: 037
  24. METHOTREXATE [Suspect]
     Active Substance: METHOTREXATE
     Dosage: 3000 MG/M2, CYCLIC (2 CYCLES OF COPADEM INDUCTION)
     Route: 065
  25. METHOTREXATE [Suspect]
     Active Substance: METHOTREXATE
     Indication: Prophylaxis against transplant rejection
     Dosage: 3000 MG/M2, CYCLIC (2 CYCLES OF CYM CONSOLIDATION)
     Route: 065
  26. METHOTREXATE [Suspect]
     Active Substance: METHOTREXATE
     Dosage: 3000 MG/M2, CYCLIC (3 CYCLES OF DIAM AT 1ST RELAPSE)
     Route: 065
  27. METHOTREXATE [Suspect]
     Active Substance: METHOTREXATE
     Indication: Central nervous system lymphoma
     Dosage: FROM 4 COURSES OF R-DIAM AT 2ND RELAPSE (3000 MG/M2 ON D3)
     Route: 065
  28. RITUXIMAB [Suspect]
     Active Substance: RITUXIMAB
     Indication: Central nervous system lymphoma
     Dosage: 375 MG/M2 (4 COURSES OF R-DIAM (RITUXIMAB 375 MG/M2 IV AT D1)(21 DAY)
     Route: 042
  29. THIOTEPA [Suspect]
     Active Substance: THIOTEPA
     Indication: Autologous haematopoietic stem cell transplant
     Dosage: 250 MG/M2 FROM  DAY-9 TO -7 : 487.50 MG X3 DOSESIN TOTAL
     Route: 065
  30. THIOTEPA [Suspect]
     Active Substance: THIOTEPA
     Indication: Prophylaxis against transplant rejection
     Dosage: 250 MG/M2 FROM DAY-9 TO -7 : 487.50 MG X3 DOSES IN TOTAL
     Route: 065
  31. RACECADOTRIL [Suspect]
     Active Substance: RACECADOTRIL
     Indication: Product used for unknown indication
     Dosage: UNK, UNKNOWN
     Route: 065
  32. FILGRASTIM [Concomitant]
     Active Substance: FILGRASTIM
     Indication: Product used for unknown indication
     Dosage: UNK
     Route: 065

REACTIONS (3)
  - Pseudomonal sepsis [Recovering/Resolving]
  - Enterobacter sepsis [Recovering/Resolving]
  - Mucosal inflammation [Recovering/Resolving]
